FAERS Safety Report 19069462 (Version 1)
Quarter: 2021Q1

REPORT INFORMATION
  Report Type: Spontaneous
  Country: CA (occurrence: CA)
  Receive Date: 20210329
  Receipt Date: 20210329
  Transmission Date: 20210420
  Serious: Yes (Life-Threatening)
  Sender: FDA-Public Use
  Company Number: CA-TEVA-2021-CA-1892008

PATIENT
  Sex: Male

DRUGS (1)
  1. TEVA?BUDESONIDE [Suspect]
     Active Substance: BUDESONIDE
     Dosage: FORM STRENGTH: 0.5

REACTIONS (3)
  - Near death experience [Unknown]
  - Feeling abnormal [Unknown]
  - Therapeutic product ineffective [Unknown]
